FAERS Safety Report 7405567-7 (Version None)
Quarter: 2011Q2

REPORT INFORMATION
  Report Type: 
  Country: None (occurrence: None)
  Receive Date: 20110411
  Receipt Date: 20110404
  Transmission Date: 20111010
  Serious: Yes (Life-Threatening, Hospitalization, Other)
  Sender: FDA-Public Use
  Company Number: AU-AMGEN-KDC428896

PATIENT

DRUGS (4)
  1. TAXOTERE [Concomitant]
  2. CISPLATIN [Concomitant]
  3. XELODA [Concomitant]
  4. PANITUMUMAB [Suspect]
     Indication: GASTROOESOPHAGEAL CANCER

REACTIONS (3)
  - DEEP VEIN THROMBOSIS [None]
  - PULMONARY EMBOLISM [None]
  - ATRIAL FIBRILLATION [None]
